APPROVED DRUG PRODUCT: SUFENTANIL CITRATE
Active Ingredient: SUFENTANIL CITRATE
Strength: EQ 0.05MG BASE/ML
Dosage Form/Route: INJECTABLE;INJECTION
Application: A074534 | Product #001 | TE Code: AP
Applicant: HOSPIRA INC
Approved: Dec 11, 1996 | RLD: No | RS: No | Type: RX